FAERS Safety Report 9690690 (Version 2)
Quarter: 2013Q4

REPORT INFORMATION
  Report Type: Spontaneous
  Country: DE (occurrence: None)
  Receive Date: 20131113
  Receipt Date: 20131223
  Transmission Date: 20140711
  Serious: Yes (Life-Threatening)
  Sender: FDA-Public Use
  Company Number: 2013P1020713

PATIENT
  Sex: 0

DRUGS (1)
  1. CEFUROXIME [Suspect]
     Dosage: 1.5 GM;X1;IV
     Route: 042

REACTIONS (1)
  - Anaphylactic shock [None]
